FAERS Safety Report 9581481 (Version 1)
Quarter: 2013Q4

REPORT INFORMATION
  Report Type: Report from Study
  Country: BR (occurrence: BR)
  Receive Date: 20131002
  Receipt Date: 20131002
  Transmission Date: 20140711
  Serious: Yes (Other)
  Sender: FDA-Public Use
  Company Number: PHHY2013BR109318

PATIENT
  Sex: Female

DRUGS (1)
  1. EXELON [Suspect]
     Dosage: 1 DF, UNK
     Dates: start: 201309

REACTIONS (3)
  - Dysentery [Unknown]
  - Constipation [Unknown]
  - Vomiting [Unknown]
